FAERS Safety Report 17887486 (Version 2)
Quarter: 2020Q3

REPORT INFORMATION
  Report Type: Spontaneous
  Country: JP (occurrence: JP)
  Receive Date: 20200611
  Receipt Date: 20200727
  Transmission Date: 20201103
  Serious: Yes (Hospitalization, Other)
  Sender: FDA-Public Use
  Company Number: JP-SA-2020SA141525

PATIENT

DRUGS (4)
  1. ESOMEPRAZOLE. [Suspect]
     Active Substance: ESOMEPRAZOLE MAGNESIUM
     Indication: GASTRIC CANCER STAGE IV
  2. OXALIPLATIN. [Suspect]
     Active Substance: OXALIPLATIN
     Indication: GASTRIC CANCER STAGE IV
     Route: 065
  3. TS?1 [Suspect]
     Active Substance: GIMERACIL\OTERACIL\TEGAFUR
     Indication: GASTRIC CANCER STAGE IV
     Route: 065
  4. NIVOLUMAB [Suspect]
     Active Substance: NIVOLUMAB
     Indication: GASTRIC CANCER STAGE IV
     Dosage: BIWEEKLY
     Route: 042

REACTIONS (5)
  - Tubulointerstitial nephritis [Recovering/Resolving]
  - Condition aggravated [Unknown]
  - Acute kidney injury [Recovering/Resolving]
  - Ascites [Recovered/Resolved]
  - IgA nephropathy [Recovering/Resolving]
